FAERS Safety Report 9839765 (Version 1)
Quarter: 2014Q1

REPORT INFORMATION
  Report Type: Spontaneous
  Country: US (occurrence: US)
  Receive Date: 20140124
  Receipt Date: 20140124
  Transmission Date: 20141002
  Serious: No
  Sender: FDA-Public Use
  Company Number: US-BIOGENIDEC-2014BI006069

PATIENT
  Sex: Female

DRUGS (9)
  1. TECFIDERA [Suspect]
     Indication: MULTIPLE SCLEROSIS
     Route: 048
  2. ASPIRIN CHILDRENS [Concomitant]
  3. B-12 ACTIVE [Concomitant]
  4. BISOPROLOL-HYDROCHLOROTHIAZIDE [Concomitant]
  5. DEXILANT [Concomitant]
  6. FOLIC ACID [Concomitant]
  7. KEPPRA [Concomitant]
  8. LYRICA [Concomitant]
  9. VITAMIN C [Concomitant]

REACTIONS (3)
  - Neuralgia [Unknown]
  - Arthralgia [Unknown]
  - Oedema peripheral [Unknown]
